FAERS Safety Report 9536171 (Version 1)
Quarter: 2013Q3

REPORT INFORMATION
  Report Type: Report from Study
  Country: GB (occurrence: GB)
  Receive Date: 20130919
  Receipt Date: 20130919
  Transmission Date: 20140515
  Serious: Yes (Other)
  Sender: FDA-Public Use
  Company Number: GB-ROCHE-1277610

PATIENT
  Age: 76 Year
  Sex: Female
  Weight: 47 kg

DRUGS (8)
  1. TOCILIZUMAB [Suspect]
     Indication: RHEUMATOID ARTHRITIS
     Dosage: LAST DATE PRIOR TO SAE: 21/JAN/2013
     Route: 065
     Dates: start: 20121008
  2. HYDROXYCHLOROQUINE [Concomitant]
  3. PARACETAMOL [Concomitant]
  4. TRAMADOL [Concomitant]
  5. LANSOPRAZOLE [Concomitant]
  6. CELECOXIB [Concomitant]
  7. STRONTIUM RANELATE [Concomitant]
  8. PREDNISOLONE [Concomitant]

REACTIONS (1)
  - Interstitial lung disease [Unknown]
